FAERS Safety Report 7720737-6 (Version None)
Quarter: 2011Q3

REPORT INFORMATION
  Report Type: 
  Country: None (occurrence: None)
  Receive Date: 20110830
  Receipt Date: 20110830
  Transmission Date: 20111222
  Serious: Yes (Other)
  Sender: FDA-Public Use
  Company Number: None

PATIENT
  Age: 58 Year
  Sex: Female
  Weight: 113.3993 kg

DRUGS (1)
  1. SOLODYN [Suspect]
     Indication: DECUBITUS ULCER
     Dosage: 115 MG 1 PER DAY ORAL
     Route: 048
     Dates: start: 20110725, end: 20110802

REACTIONS (5)
  - DYSPHAGIA [None]
  - PHARYNGEAL ULCERATION [None]
  - MOUTH ULCERATION [None]
  - GINGIVAL ULCERATION [None]
  - OESOPHAGEAL ULCER [None]
